FAERS Safety Report 5424432-8 (Version None)
Quarter: 2007Q3

REPORT INFORMATION
  Report Type: 
  Country: None (occurrence: None)
  Receive Date: 20070822
  Receipt Date: 20070814
  Transmission Date: 20080115
  Serious: Yes (Hospitalization)
  Sender: FDA-Public Use
  Company Number: 2007SP016469

PATIENT
  Age: 35 Year
  Sex: Male
  Weight: 83 kg

DRUGS (3)
  1. VIRAFERONPEG [Suspect]
     Indication: HEPATITIS C
     Dosage: 120 MCG; ; SC
     Route: 058
     Dates: start: 20070118, end: 20070221
  2. REBETOL [Suspect]
     Indication: HEPATITIS C
     Dosage: 1000 MG; ; PO
     Route: 048
     Dates: start: 20070118
  3. DIAZEPAM [Concomitant]

REACTIONS (2)
  - PLEURITIC PAIN [None]
  - PNEUMONIA [None]
